FAERS Safety Report 5994300-1 (Version None)
Quarter: 2008Q4

REPORT INFORMATION
  Report Type: 
  Country: None (occurrence: None)
  Receive Date: 20081212
  Receipt Date: 20080905
  Transmission Date: 20090506
  Serious: No
  Sender: FDA-Public Use
  Company Number: US-ABBOTT-08P-163-0474797-00

PATIENT
  Sex: Male
  Weight: 108.05 kg

DRUGS (3)
  1. HUMIRA [Suspect]
     Indication: RHEUMATOID ARTHRITIS
     Route: 050
     Dates: start: 20060101
  2. CLONIDINE [Concomitant]
     Indication: HYPERTENSION
     Route: 048
     Dates: start: 20050101
  3. ENALAPRIL MALEATE [Concomitant]
     Indication: HYPERTENSION
     Route: 048
     Dates: start: 20040101

REACTIONS (7)
  - BLOOD CALCIUM DECREASED [None]
  - BLOOD TESTOSTERONE DECREASED [None]
  - FUNGAL INFECTION [None]
  - NAIL DISCOLOURATION [None]
  - ONYCHOMADESIS [None]
  - URINARY TRACT INFECTION [None]
  - VITAMIN D DEFICIENCY [None]
